FAERS Safety Report 23545528 (Version 2)
Quarter: 2024Q2

REPORT INFORMATION
  Report Type: Report from Study
  Country: US (occurrence: US)
  Receive Date: 20240220
  Receipt Date: 20240418
  Transmission Date: 20240715
  Serious: Yes (Other)
  Sender: FDA-Public Use
  Company Number: US-OTSUKA-2024_003743

PATIENT
  Age: 55 Year
  Sex: Male
  Weight: 118.3 kg

DRUGS (30)
  1. TOLVAPTAN [Suspect]
     Active Substance: TOLVAPTAN
     Indication: Congenital cystic kidney disease
     Dosage: 60 MG, QD (EVERY MORNING OR QAM)
     Route: 048
  2. TOLVAPTAN [Suspect]
     Active Substance: TOLVAPTAN
     Indication: Congenital cystic kidney disease
     Dosage: 30 MG, QD (8 H LATER)
     Route: 048
  3. ZOVIRAX [Concomitant]
     Active Substance: ACYCLOVIR
     Indication: Product used for unknown indication
     Dosage: 1 DF, QD (IN THE MORNING)
     Route: 048
  4. ZOVIRAX [Concomitant]
     Active Substance: ACYCLOVIR
     Dosage: 1 DF, QD (IN THE EVENING)
     Route: 048
  5. NORVASC [Concomitant]
     Active Substance: AMLODIPINE BESYLATE
     Indication: Hypertension
     Dosage: 1 DF, QD
     Route: 048
  6. LIPITOR [Concomitant]
     Active Substance: ATORVASTATIN CALCIUM
     Indication: Disease risk factor
     Dosage: 1 DF, QD
     Route: 048
  7. LOTENSIN [Concomitant]
     Active Substance: BENAZEPRIL HYDROCHLORIDE
     Indication: Hypertension
     Dosage: 1 DF, QD
     Route: 048
  8. WELLBUTRIN [Concomitant]
     Active Substance: BUPROPION HYDROCHLORIDE
     Indication: Affective disorder
     Dosage: 1 DF, QD (24 HR TABLET, DO NOT CRUSH, CHEW OR SPLIT)
     Route: 048
  9. ROCALTROL [Concomitant]
     Active Substance: CALCITRIOL
     Indication: Bone disorder
     Dosage: 1 DF, QD (IN THE MORNING)
     Route: 048
  10. ROCALTROL [Concomitant]
     Active Substance: CALCITRIOL
     Indication: Hyperparathyroidism secondary
  11. COREG [Concomitant]
     Active Substance: CARVEDILOL
     Indication: Product used for unknown indication
     Dosage: 2 DF, QD (IN THE MORNING WITH FOOD)
     Route: 048
  12. COREG [Concomitant]
     Active Substance: CARVEDILOL
     Dosage: 2 DF, QD (IN THE EVENING WITH FOOD)
     Route: 048
  13. PERIDEX [CHLORHEXIDINE GLUCONATE] [Concomitant]
     Indication: Product used for unknown indication
     Dosage: 15 ML, BID (SOLUTION IN MOUTH OR THROAT)
     Route: 048
  14. CATAPRES [Concomitant]
     Active Substance: CLONIDINE HYDROCHLORIDE
     Indication: Hypertension
     Dosage: 1 DF, BID
     Route: 048
  15. CATAPRES [Concomitant]
     Active Substance: CLONIDINE HYDROCHLORIDE
     Dosage: UNK (0.2 AT BEDTIME)
     Route: 065
  16. LASIX [Concomitant]
     Active Substance: FUROSEMIDE
     Indication: Hypertension
     Dosage: 1 DF, QD (IN THE MORNING)
     Route: 048
  17. LASIX [Concomitant]
     Active Substance: FUROSEMIDE
     Dosage: 1 DF, QD (IN THE EVENING)
     Route: 048
  18. LASIX [Concomitant]
     Active Substance: FUROSEMIDE
     Dosage: 40 MG, QD
     Route: 065
  19. LASIX [Concomitant]
     Active Substance: FUROSEMIDE
     Dosage: 20 MG, QD
     Route: 065
  20. ATIVAN [Concomitant]
     Active Substance: LORAZEPAM
     Indication: Anxiety
     Dosage: 1 DF, AS NECESSARY (IN THE MORNING AND IN EVENING)
     Route: 048
  21. ZOLOFT [Concomitant]
     Active Substance: SERTRALINE HYDROCHLORIDE
     Indication: Affective disorder
     Dosage: 1 DF, QD
     Route: 048
  22. CARVEDILOL [Concomitant]
     Active Substance: CARVEDILOL
     Indication: Hypertension
     Dosage: 50 MG, BID
     Route: 065
  23. CARVEDILOL [Concomitant]
     Active Substance: CARVEDILOL
     Indication: Disease risk factor
  24. ACEL [Concomitant]
     Indication: Disease risk factor
     Dosage: UNK
     Route: 065
  25. ACYCLOVIR [Concomitant]
     Active Substance: ACYCLOVIR
     Indication: Herpes simplex
     Dosage: UNK, AS NECESSARY
     Route: 065
  26. OMEPRAZOLE [Concomitant]
     Active Substance: OMEPRAZOLE
     Indication: Gastrooesophageal reflux disease
     Dosage: UNK
     Route: 065
  27. TETANUS TOXOID, REDUCED DIPHTHERIA TOXOID AND ACELLULAR PERTUSSIS VACC [Concomitant]
     Active Substance: TETANUS TOXOID, REDUCED DIPHTHERIA TOXOID AND ACELLULAR PERTUSSIS VACCINE ADSORBED, TDAP
     Indication: Product used for unknown indication
     Dosage: UNK
     Route: 065
     Dates: start: 2015
  28. PREVNAR [Concomitant]
     Active Substance: PNEUMOCOCCAL 7-VALENT CONJUGATE VACCINE (DIPHTHERIA CRM197 PROTEIN)
     Indication: Product used for unknown indication
     Dosage: UNK
     Route: 065
     Dates: start: 201805
  29. INFLUENZA VIRUS VACCINE [Concomitant]
     Active Substance: INFLUENZA VIRUS VACCINE
     Indication: Product used for unknown indication
     Dosage: UNK (UPTO DATE)
     Route: 065
  30. PNEUMOVAX 23 [Concomitant]
     Active Substance: PNEUMOCOCCAL VACCINE, POLYVALENT 23
     Indication: Product used for unknown indication
     Dosage: UNK
     Route: 065
     Dates: start: 201811

REACTIONS (7)
  - Renal impairment [Not Recovered/Not Resolved]
  - Blood parathyroid hormone abnormal [Unknown]
  - Balance disorder [Unknown]
  - Micturition disorder [Unknown]
  - Flank pain [Unknown]
  - Weight increased [Unknown]
  - Abdominal distension [Unknown]

NARRATIVE: CASE EVENT DATE: 20240214
